FAERS Safety Report 25782223 (Version 1)
Quarter: 2025Q3

REPORT INFORMATION
  Report Type: Report from Study
  Country: US (occurrence: US)
  Receive Date: 20250909
  Receipt Date: 20250909
  Transmission Date: 20251021
  Serious: Yes (Hospitalization)
  Sender: BIOGEN
  Company Number: US-BIOGEN-2025BI01323050

PATIENT
  Sex: Male

DRUGS (1)
  1. SKYCLARYS [Suspect]
     Active Substance: OMAVELOXOLONE
     Indication: Friedreich^s ataxia
     Route: 050
     Dates: start: 20230921

REACTIONS (5)
  - Ear infection [Unknown]
  - Hypotension [Unknown]
  - Atrial fibrillation [Unknown]
  - White blood cell count increased [Unknown]
  - Troponin increased [Unknown]
